FAERS Safety Report 21388252 (Version 1)
Quarter: 2022Q3

REPORT INFORMATION
  Report Type: Spontaneous
  Country: JP (occurrence: JP)
  Receive Date: 20220928
  Receipt Date: 20220928
  Transmission Date: 20221027
  Serious: Yes (Life-Threatening, Other)
  Sender: FDA-Public Use
  Company Number: JP-PFIZER INC-PV202200072212

PATIENT
  Age: 45 Year
  Sex: Female

DRUGS (3)
  1. SIROLIMUS [Suspect]
     Active Substance: SIROLIMUS
     Indication: Lymphangioleiomyomatosis
     Dosage: 1 MG
     Route: 048
     Dates: start: 20210616, end: 20211129
  2. SIROLIMUS [Suspect]
     Active Substance: SIROLIMUS
     Dosage: 2 MG
     Route: 048
     Dates: start: 20211130, end: 20220531
  3. SIROLIMUS [Suspect]
     Active Substance: SIROLIMUS
     Dosage: 1 MG
     Route: 048
     Dates: start: 20220601, end: 20220920

REACTIONS (2)
  - Atypical mycobacterial infection [Unknown]
  - Mycobacterium abscessus infection [Unknown]

NARRATIVE: CASE EVENT DATE: 20220601
